FAERS Safety Report 10055935 (Version 1)
Quarter: 2014Q2

REPORT INFORMATION
  Report Type: Spontaneous
  Country: US (occurrence: US)
  Receive Date: 20140403
  Receipt Date: 20140403
  Transmission Date: 20141212
  Serious: Yes (Hospitalization)
  Sender: FDA-Public Use
  Company Number: US-JNJFOC-20140317892

PATIENT
  Age: 63 Year
  Sex: Male

DRUGS (7)
  1. XARELTO [Suspect]
     Indication: CEREBROVASCULAR ACCIDENT PROPHYLAXIS
     Route: 048
     Dates: end: 2014
  2. XARELTO [Suspect]
     Indication: ATRIAL FIBRILLATION
     Route: 048
     Dates: end: 2014
  3. AVODART [Concomitant]
     Route: 065
  4. DOXAZOSIN [Concomitant]
     Route: 065
  5. METAMUCIL [Concomitant]
     Route: 065
  6. METOPROLOL [Concomitant]
     Route: 065
  7. VITAMIN D3 [Concomitant]
     Route: 065

REACTIONS (2)
  - Pericardial effusion [Unknown]
  - Fibrin D dimer increased [Unknown]
